FAERS Safety Report 18997208 (Version 1)
Quarter: 2021Q1

REPORT INFORMATION
  Report Type: Spontaneous
  Country: JP (occurrence: JP)
  Receive Date: 20210311
  Receipt Date: 20210311
  Transmission Date: 20210420
  Serious: Yes (Death, Other)
  Sender: FDA-Public Use
  Company Number: JP-GLAXOSMITHKLINE-JP2021058620

PATIENT
  Age: 3 Decade
  Sex: Female

DRUGS (1)
  1. ZOVIRAX [Suspect]
     Active Substance: ACYCLOVIR
     Dosage: 400 MG/DAY
     Route: 048

REACTIONS (6)
  - Adverse drug reaction [Unknown]
  - Death [Fatal]
  - Interstitial lung disease [Unknown]
  - Hepatic failure [Unknown]
  - Infection [Unknown]
  - Incorrect product administration duration [Unknown]
